FAERS Safety Report 13412486 (Version 2)
Quarter: 2017Q4

REPORT INFORMATION
  Report Type: Spontaneous
  Country: US (occurrence: US)
  Receive Date: 20170406
  Receipt Date: 20171123
  Transmission Date: 20180320
  Serious: No
  Sender: FDA-Public Use
  Company Number: US-JNJFOC-20170309374

PATIENT
  Sex: Male

DRUGS (4)
  1. RISPERDAL [Suspect]
     Active Substance: RISPERIDONE
     Indication: DEPRESSION
     Dosage: 0.5 MG, 1 MG AND 2 MG
     Route: 048
     Dates: start: 20011204, end: 20060215
  2. RISPERDAL [Suspect]
     Active Substance: RISPERIDONE
     Indication: BIPOLAR DISORDER
     Dosage: 0.5 MG, 1 MG AND 2 MG
     Route: 048
     Dates: start: 20001011, end: 20010328
  3. RISPERDAL [Suspect]
     Active Substance: RISPERIDONE
     Indication: BIPOLAR DISORDER
     Dosage: 0.5 MG, 1 MG AND 2 MG
     Route: 048
     Dates: start: 20011204, end: 20060215
  4. RISPERDAL [Suspect]
     Active Substance: RISPERIDONE
     Indication: DEPRESSION
     Dosage: 0.5 MG, 1 MG AND 2 MG
     Route: 048
     Dates: start: 20001011, end: 20010328

REACTIONS (2)
  - Emotional disorder [Unknown]
  - Gynaecomastia [Unknown]
